FAERS Safety Report 9630720 (Version 1)
Quarter: 2013Q4

REPORT INFORMATION
  Report Type: Spontaneous
  Country: US (occurrence: None)
  Receive Date: 20131016
  Receipt Date: 20131016
  Transmission Date: 20140711
  Serious: Yes (Other)
  Sender: FDA-Public Use
  Company Number: 2013AP008698

PATIENT
  Sex: Female

DRUGS (1)
  1. OLANZAPINE [Suspect]

REACTIONS (8)
  - Psychotic disorder [None]
  - Sedation [None]
  - Irritability [None]
  - Memory impairment [None]
  - Paranoia [None]
  - Anxiety [None]
  - Poor quality sleep [None]
  - Therapeutic product ineffective [None]
